FAERS Safety Report 5032809-8 (Version None)
Quarter: 2006Q2

REPORT INFORMATION
  Report Type: 
  Country: None (occurrence: None)
  Receive Date: 20060620
  Receipt Date: 20060525
  Transmission Date: 20061013
  Serious: Yes (Death)
  Sender: FDA-Public Use
  Company Number: 2536

PATIENT
  Age: 64 Year
  Sex: Male
  Weight: 136.0791 kg

DRUGS (3)
  1. AMNESTEEM [Suspect]
     Indication: BRAIN CANCER METASTATIC
     Dosage: 10 MG, BID, PO 80 MG, BID, PO
     Route: 048
     Dates: start: 20060403, end: 20060423
  2. AMNESTEEM [Suspect]
     Indication: BRAIN CANCER METASTATIC
     Dosage: 10 MG, BID, PO 80 MG, BID, PO
     Route: 048
     Dates: start: 20060403, end: 20060423
  3. LISINOPRIL [Concomitant]

REACTIONS (1)
  - DEATH [None]
